FAERS Safety Report 16568186 (Version 1)
Quarter: 2019Q3

REPORT INFORMATION
  Report Type: Report from Study
  Country: US (occurrence: US)
  Receive Date: 20190712
  Receipt Date: 20190712
  Transmission Date: 20191004
  Serious: Yes (Other)
  Sender: FDA-Public Use
  Company Number: US-GILEAD-2019-0417930

PATIENT
  Age: 66 Year
  Sex: Female

DRUGS (1)
  1. IDELALISIB [Suspect]
     Active Substance: IDELALISIB
     Indication: BREAST CANCER FEMALE
     Dosage: 150 MG, BID
     Route: 048
     Dates: start: 20181030, end: 201906

REACTIONS (3)
  - Gastric infection [Unknown]
  - Off label use [Unknown]
  - Vomiting [Unknown]

NARRATIVE: CASE EVENT DATE: 20181030
